FAERS Safety Report 9793245 (Version 11)
Quarter: 2014Q2

REPORT INFORMATION
  Report Type: Report from Study
  Country: US (occurrence: US)
  Receive Date: 20140102
  Receipt Date: 20140404
  Transmission Date: 20141212
  Serious: Yes (Hospitalization)
  Sender: FDA-Public Use
  Company Number: US-PFIZER INC-2013367813

PATIENT
  Age: 56 Year
  Sex: Male
  Weight: 68.5 kg

DRUGS (9)
  1. TOFACITINIB CITRATE [Suspect]
     Indication: RHEUMATOID ARTHRITIS
     Dosage: 10 MG, 2X/DAY
     Route: 048
     Dates: start: 20130228, end: 20140312
  2. METHOTREXATE SODIUM [Suspect]
     Indication: RHEUMATOID ARTHRITIS
     Dosage: 25 MG, WEEKLY
     Route: 058
     Dates: start: 20070727, end: 20131207
  3. FOLIC ACID [Concomitant]
     Indication: SUPPLEMENTATION THERAPY
     Dosage: 1200 UG, 1X/DAY
     Route: 048
     Dates: start: 20080904, end: 20131208
  4. PREDNISONE [Concomitant]
     Indication: RHEUMATOID ARTHRITIS
     Dosage: 10 MG, 1X/DAY
     Route: 048
     Dates: start: 20070126, end: 20131208
  5. AMITRIPTYLINE [Concomitant]
     Indication: INSOMNIA
     Dosage: 25 MG, AS NEEDED
     Route: 048
     Dates: start: 200410
  6. CENTRUM SILVER MULTIVITAMIN [Concomitant]
     Indication: SUPPLEMENTATION THERAPY
     Dosage: 1 DF, 1X/DAY
     Route: 048
     Dates: start: 2003
  7. IRON SULFATE [Concomitant]
     Indication: ANAEMIA
     Dosage: 325 MG, 1X/DAY
     Route: 048
     Dates: start: 20080924
  8. CITALOPRAM [Concomitant]
     Indication: DEPRESSION
     Dosage: 20 MG, 1X/DAY
     Route: 048
     Dates: start: 20131003
  9. HYDROCODONE [Concomitant]
     Indication: PAIN
     Dosage: 10 MG, AS NEEDED
     Route: 048
     Dates: start: 20131028

REACTIONS (7)
  - Pneumonia [Recovered/Resolved]
  - Sepsis [Recovered/Resolved]
  - Pyrexia [Recovered/Resolved]
  - Confusional state [Recovered/Resolved]
  - Metabolic encephalopathy [Recovered/Resolved]
  - Acute respiratory failure [Recovered/Resolved]
  - Rheumatoid arthritis [Recovered/Resolved]
